FAERS Safety Report 15057216 (Version 2)
Quarter: 2018Q2

REPORT INFORMATION
  Report Type: Spontaneous
  Country: FR (occurrence: FR)
  Receive Date: 20180624
  Receipt Date: 20180628
  Transmission Date: 20180711
  Serious: Yes (Other)
  Sender: FDA-Public Use
  Company Number: FR-BEH-2018090393

PATIENT
  Age: 61 Year
  Sex: Male

DRUGS (5)
  1. MONONINE [Suspect]
     Active Substance: COAGULATION FACTOR IX HUMAN
     Indication: PRODUCT USED FOR UNKNOWN INDICATION
     Dosage: 2000 IU OR 3000 IU EVERY TWO DAYS TO THREE DAYS
     Route: 065
  2. MONONINE [Suspect]
     Active Substance: COAGULATION FACTOR IX HUMAN
     Dosage: UNK
     Route: 065
  3. MONONINE [Suspect]
     Active Substance: COAGULATION FACTOR IX HUMAN
     Dosage: UNK
     Route: 065
  4. MONONINE [Suspect]
     Active Substance: COAGULATION FACTOR IX HUMAN
     Dosage: UNK
     Route: 065
  5. MONONINE [Suspect]
     Active Substance: COAGULATION FACTOR IX HUMAN
     Dosage: UNK
     Route: 065

REACTIONS (6)
  - Joint swelling [Unknown]
  - Haematuria [Recovered/Resolved]
  - Joint effusion [Unknown]
  - Arthralgia [Unknown]
  - Haemarthrosis [Unknown]
  - Drug ineffective [Unknown]

NARRATIVE: CASE EVENT DATE: 201805
